FAERS Safety Report 8989401 (Version 2)
Quarter: 2013Q1

REPORT INFORMATION
  Report Type: Spontaneous
  Country: JP (occurrence: JP)
  Receive Date: 20121227
  Receipt Date: 20130207
  Transmission Date: 20140127
  Serious: Yes (Other)
  Sender: FDA-Public Use
  Company Number: JP-ELI_LILLY_AND_COMPANY-JP201212005861

PATIENT
  Age: 45 Year
  Sex: Female

DRUGS (3)
  1. STRATTERA [Suspect]
     Indication: ATTENTION DEFICIT/HYPERACTIVITY DISORDER
     Dosage: 40 MG, QD
     Route: 048
     Dates: start: 20121005, end: 20121005
  2. STRATTERA [Suspect]
     Dosage: 10 UNK, UNK
     Route: 048
     Dates: start: 20121128
  3. LOXOMARIN [Concomitant]
     Dosage: 60 MG, PRN
     Route: 048

REACTIONS (1)
  - Syncope [Recovered/Resolved]
